FAERS Safety Report 26026008 (Version 1)
Quarter: 2025Q4

REPORT INFORMATION
  Report Type: Spontaneous
  Country: EU (occurrence: EU)
  Receive Date: 20251111
  Receipt Date: 20251111
  Transmission Date: 20260118
  Serious: Yes (Other)
  Sender: JOHNSON AND JOHNSON
  Company Number: EU-JNJFOC-20251017384

PATIENT
  Age: 71 Year
  Sex: Male

DRUGS (8)
  1. TALVEY [Suspect]
     Active Substance: TALQUETAMAB-TGVS
     Indication: Plasma cell myeloma
     Dosage: 0.01 MG/KG
     Route: 065
     Dates: start: 20240809
  2. TALVEY [Suspect]
     Active Substance: TALQUETAMAB-TGVS
     Dosage: 0.06 MG/KG
     Route: 065
     Dates: start: 20240811
  3. TALVEY [Suspect]
     Active Substance: TALQUETAMAB-TGVS
     Route: 065
     Dates: start: 20240813, end: 20241119
  4. TALVEY [Suspect]
     Active Substance: TALQUETAMAB-TGVS
     Dosage: LAST DOSE ON 08-OCT-2025
     Route: 065
     Dates: start: 20241120
  5. ACYCLOVIR [Concomitant]
     Active Substance: ACYCLOVIR
     Indication: Prophylaxis
  6. LEVOXA [LEVOFLOXACIN] [Concomitant]
     Indication: Prophylaxis
  7. BISEPTOL [Concomitant]
     Active Substance: SULFAMETHOXAZOLE\TRIMETHOPRIM
     Indication: Prophylaxis
  8. IMMUNOGLOBULINS [Concomitant]
     Indication: Prophylaxis

REACTIONS (2)
  - Hypogammaglobulinaemia [Unknown]
  - Infection [Unknown]
